FAERS Safety Report 7456434-4 (Version None)
Quarter: 2011Q2

REPORT INFORMATION
  Report Type: 
  Country: None (occurrence: None)
  Receive Date: 20110426
  Receipt Date: 20110413
  Transmission Date: 20111010
  Serious: Yes (Other)
  Sender: FDA-Public Use
  Company Number: 028813

PATIENT

DRUGS (1)
  1. LACOSAMIDE [Suspect]
     Indication: EPILEPSY
     Dosage: (INTRAVENOUS (NOT OTHERWISER SPECIFIED))
     Route: 042

REACTIONS (2)
  - STATUS EPILEPTICUS [None]
  - OFF LABEL USE [None]
